FAERS Safety Report 4668539-1 (Version None)
Quarter: 2005Q2

REPORT INFORMATION
  Report Type: 
  Country: None (occurrence: None)
  Receive Date: 20050518
  Receipt Date: 20050429
  Transmission Date: 20051028
  Serious: Yes (Hospitalization)
  Sender: FDA-Public Use
  Company Number: B0380047A

PATIENT
  Age: 46 Year
  Sex: Female

DRUGS (4)
  1. ALBENZA [Suspect]
     Indication: ECHINOCOCCIASIS
     Dosage: ORAL
     Dates: start: 20050408, end: 20050412
  2. AUGMENTIN '125' [Suspect]
     Dosage: ORAL
     Route: 048
     Dates: start: 20050408, end: 20050412
  3. TRAMADOL HCL [Suspect]
     Dosage: ORAL
     Route: 048
  4. CIFLOX TABLET [Suspect]
     Dosage: 500 MG/TWICE PER DAY/ORAL
     Route: 048

REACTIONS (4)
  - ECHINOCOCCIASIS [None]
  - HAEMOLYSIS [None]
  - LIVER DISORDER [None]
  - LUNG DISORDER [None]
